FAERS Safety Report 7804582-9 (Version None)
Quarter: 2011Q4

REPORT INFORMATION
  Report Type: 
  Country: None (occurrence: None)
  Receive Date: 20111010
  Receipt Date: 20111003
  Transmission Date: 20120403
  Serious: Yes (Hospitalization)
  Sender: FDA-Public Use
  Company Number: US-AMGEN-USASP2011050842

PATIENT
  Age: 64 Year
  Sex: Female

DRUGS (1)
  1. ENBREL [Suspect]
     Indication: RHEUMATOID ARTHRITIS
     Dosage: 50 MG, QWK
     Dates: start: 20080610, end: 20110101

REACTIONS (12)
  - SPINAL COLUMN STENOSIS [None]
  - FEMORAL ARTERY OCCLUSION [None]
  - PLEURAL FIBROSIS [None]
  - FATIGUE [None]
  - INJECTION SITE SWELLING [None]
  - GAIT DISTURBANCE [None]
  - PULMONARY EMBOLISM [None]
  - INFLUENZA LIKE ILLNESS [None]
  - THROMBOSIS [None]
  - LETHARGY [None]
  - RHEUMATOID ARTHRITIS [None]
  - DRUG INEFFECTIVE [None]
